FAERS Safety Report 13839740 (Version 1)
Quarter: 2017Q3

REPORT INFORMATION
  Report Type: Spontaneous
  Country: US (occurrence: US)
  Receive Date: 20170807
  Receipt Date: 20170807
  Transmission Date: 20171127
  Serious: No
  Sender: FDA-Public Use
  Company Number: US-SUNOVION-2017SUN003291

PATIENT
  Age: 20 Year

DRUGS (1)
  1. LATUDA [Suspect]
     Active Substance: LURASIDONE HYDROCHLORIDE
     Dosage: UNK
     Route: 048

REACTIONS (8)
  - Feeling abnormal [Unknown]
  - Drug administration error [Unknown]
  - Speech disorder [Unknown]
  - Hallucination [Unknown]
  - Disturbance in attention [Unknown]
  - Hypoaesthesia [Unknown]
  - Lethargy [Unknown]
  - Weight increased [Unknown]
